FAERS Safety Report 16451133 (Version 1)
Quarter: 2019Q2

REPORT INFORMATION
  Report Type: Spontaneous
  Country: US (occurrence: US)
  Receive Date: 20190619
  Receipt Date: 20190619
  Transmission Date: 20190711
  Serious: No
  Sender: FDA-Public Use
  Company Number: US-PFIZER INC-2019257749

PATIENT
  Age: 52 Year
  Sex: Female
  Weight: 65.77 kg

DRUGS (4)
  1. GABAPENTIN. [Suspect]
     Active Substance: GABAPENTIN
     Indication: ANXIETY
     Dosage: 300 MG, 3X/DAY
     Route: 048
  2. GABAPENTIN. [Suspect]
     Active Substance: GABAPENTIN
     Indication: FIBROMYALGIA
  3. GABAPENTIN. [Suspect]
     Active Substance: GABAPENTIN
     Indication: PAIN
  4. BUPROPION HCL [Concomitant]
     Active Substance: BUPROPION HYDROCHLORIDE
     Indication: DEPRESSION
     Dosage: 150 MG, UNK

REACTIONS (3)
  - Off label use [Unknown]
  - Drug ineffective [Unknown]
  - Product use in unapproved indication [Unknown]
